FAERS Safety Report 24618814 (Version 1)
Quarter: 2024Q4

REPORT INFORMATION
  Report Type: Spontaneous
  Country: US (occurrence: None)
  Receive Date: 20241113
  Receipt Date: 20241113
  Transmission Date: 20250114
  Serious: No
  Sender: Public
  Company Number: None

PATIENT
  Sex: 0

DRUGS (2)
  1. VALTOCO [Suspect]
     Active Substance: DIAZEPAM
     Route: 045
  2. VALTOCO [Suspect]
     Active Substance: DIAZEPAM
     Route: 045

REACTIONS (3)
  - Product packaging confusion [None]
  - Circumstance or information capable of leading to medication error [None]
  - Product label confusion [None]
